FAERS Safety Report 7897655-6 (Version None)
Quarter: 2011Q4

REPORT INFORMATION
  Report Type: 
  Country: None (occurrence: None)
  Receive Date: 20111107
  Receipt Date: 20111102
  Transmission Date: 20120403
  Serious: Yes (Other)
  Sender: FDA-Public Use
  Company Number: AT-PFIZER INC-2011268029

PATIENT
  Sex: Female

DRUGS (1)
  1. MEDROXYPROGESTERONE ACETATE [Suspect]

REACTIONS (1)
  - VAGINAL HAEMORRHAGE [None]
